FAERS Safety Report 10610848 (Version 2)
Quarter: 2014Q4

REPORT INFORMATION
  Report Type: Spontaneous
  Country: US (occurrence: US)
  Receive Date: 20141126
  Receipt Date: 20141220
  Transmission Date: 20150529
  Serious: Yes (Hospitalization, Other)
  Sender: FDA-Public Use
  Company Number: US-MERCK-1411USA009859

PATIENT
  Age: 79 Year
  Sex: Male

DRUGS (1)
  1. INVANZ [Suspect]
     Active Substance: ERTAPENEM SODIUM
     Indication: OSTEONECROSIS OF JAW
     Dosage: 1 G ONCE A DAY
     Route: 042

REACTIONS (3)
  - Seizure [Recovering/Resolving]
  - Confusional state [Recovered/Resolved]
  - Drug administration error [Unknown]
